FAERS Safety Report 22651390 (Version 4)
Quarter: 2023Q4

REPORT INFORMATION
  Report Type: Report from Study
  Country: US (occurrence: US)
  Receive Date: 20230628
  Receipt Date: 20231110
  Transmission Date: 20240110
  Serious: Yes (Hospitalization, Other)
  Sender: FDA-Public Use
  Company Number: US-002147023-NVSC2023US144862

PATIENT
  Sex: Male

DRUGS (1)
  1. ENTRESTO [Suspect]
     Active Substance: SACUBITRIL\VALSARTAN
     Indication: Product used for unknown indication
     Dosage: UNK
     Route: 065

REACTIONS (6)
  - Vein rupture [Unknown]
  - Haemorrhage [Unknown]
  - Acute myocardial infarction [Unknown]
  - Cardiac dysfunction [Unknown]
  - Coronary artery occlusion [Unknown]
  - Loss of consciousness [Unknown]
